FAERS Safety Report 17673518 (Version 1)
Quarter: 2020Q2

REPORT INFORMATION
  Report Type: Spontaneous
  Country: FR (occurrence: FR)
  Receive Date: 20200416
  Receipt Date: 20200416
  Transmission Date: 20200713
  Serious: Yes (Hospitalization, Other)
  Sender: FDA-Public Use
  Company Number: FR-AUROBINDO-AUR-APL-2020-017699

PATIENT
  Age: 37 Year
  Sex: Male

DRUGS (5)
  1. COCAINE [Suspect]
     Active Substance: COCAINE
     Indication: PRODUCT USED FOR UNKNOWN INDICATION
     Dosage: UNK
     Route: 065
  2. HEROIN [Suspect]
     Active Substance: DIAMORPHINE
     Indication: PRODUCT USED FOR UNKNOWN INDICATION
     Dosage: UNK
     Route: 065
     Dates: start: 1999
  3. DULOXETINE. [Suspect]
     Active Substance: DULOXETINE
     Indication: PRODUCT USED FOR UNKNOWN INDICATION
     Dosage: 1680 MILLIGRAM, TOTAL
     Route: 048
     Dates: start: 20200205
  4. METHADONE AP HP [Suspect]
     Active Substance: METHADONE HYDROCHLORIDE
     Indication: PRODUCT USED FOR UNKNOWN INDICATION
     Dosage: NON RENSEIGN?E
     Route: 048
     Dates: start: 20200205
  5. TERCIAN [Suspect]
     Active Substance: CYAMEMAZINE
     Indication: PRODUCT USED FOR UNKNOWN INDICATION
     Dosage: 2200 MILLIGRAM, TOTAL
     Route: 048
     Dates: start: 20200205

REACTIONS (7)
  - Bladder dilatation [Recovered/Resolved]
  - Coma [Recovered/Resolved]
  - Miosis [Recovered/Resolved]
  - Drug abuse [Not Recovered/Not Resolved]
  - Sinus tachycardia [Recovered/Resolved]
  - Toxicity to various agents [Recovered/Resolved]
  - Respiratory depression [Recovered/Resolved]

NARRATIVE: CASE EVENT DATE: 1999
